FAERS Safety Report 5213812-1 (Version None)
Quarter: 2007Q1

REPORT INFORMATION
  Report Type: 
  Country: None (occurrence: None)
  Receive Date: 20070119
  Receipt Date: 20070111
  Transmission Date: 20070707
  Serious: Yes (Hospitalization)
  Sender: FDA-Public Use
  Company Number: JP-ABBOTT-07P-087-0355513-00

PATIENT
  Age: 55 Year
  Sex: Male

DRUGS (18)
  1. KALETRA [Suspect]
     Indication: HIV INFECTION
     Route: 048
     Dates: start: 20020513, end: 20020715
  2. KALETRA [Suspect]
     Route: 048
     Dates: start: 20030409, end: 20030409
  3. EFAVIRENZ [Suspect]
     Indication: HIV INFECTION
     Route: 048
     Dates: start: 20010323, end: 20020513
  4. EFAVIRENZ [Suspect]
     Dates: start: 20030409, end: 20030409
  5. EFAVIRENZ [Suspect]
     Dates: start: 20030425, end: 20030521
  6. EFAVIRENZ [Suspect]
     Dates: start: 20041004
  7. ABACAVIR SULFATE [Suspect]
     Indication: HIV INFECTION
     Route: 048
     Dates: start: 20010406, end: 20030408
  8. NELFINAVIR MESILATE [Suspect]
     Indication: HIV INFECTION
     Route: 048
     Dates: start: 20030425, end: 20040521
  9. NELFINAVIR MESILATE [Suspect]
     Dates: start: 20041004
  10. ASPERGILLUS ORYZAE ENZYME EXTRACT [Concomitant]
     Indication: DRUG USE FOR UNKNOWN INDICATION
     Dates: start: 20010314, end: 20040808
  11. LAC-B [Concomitant]
     Indication: DRUG USE FOR UNKNOWN INDICATION
     Dates: start: 20010228, end: 20020310
  12. BACTRIM [Concomitant]
     Indication: DRUG USE FOR UNKNOWN INDICATION
     Dates: start: 20010202, end: 20030708
  13. VIREAD [Concomitant]
     Indication: DRUG USE FOR UNKNOWN INDICATION
     Dates: start: 20030409
  14. LAMIVUDINE [Concomitant]
     Indication: DRUG USE FOR UNKNOWN INDICATION
     Dates: start: 20010208, end: 20030408
  15. TENOFOVIR [Concomitant]
     Indication: DRUG USE FOR UNKNOWN INDICATION
     Dates: end: 20030409
  16. TENOFOVIR [Concomitant]
     Dates: start: 20030425
  17. ASPIRIN [Concomitant]
     Indication: DRUG USE FOR UNKNOWN INDICATION
  18. ASPIRIN [Concomitant]

REACTIONS (13)
  - BRADYCARDIA [None]
  - CHEST DISCOMFORT [None]
  - DIARRHOEA [None]
  - DIZZINESS [None]
  - EXTRASYSTOLES [None]
  - HEADACHE [None]
  - MALAISE [None]
  - NAUSEA [None]
  - PALPITATIONS [None]
  - SICK SINUS SYNDROME [None]
  - SUPRAVENTRICULAR EXTRASYSTOLES [None]
  - VENTRICULAR EXTRASYSTOLES [None]
  - VOMITING [None]
